FAERS Safety Report 24371033 (Version 8)
Quarter: 2025Q1

REPORT INFORMATION
  Report Type: Spontaneous
  Country: JP (occurrence: JP)
  Receive Date: 20240927
  Receipt Date: 20250131
  Transmission Date: 20250409
  Serious: Yes (Hospitalization, Other)
  Sender: MERCK
  Company Number: JP-MSD-M2024-37911

PATIENT
  Age: 58 Year
  Sex: Female

DRUGS (4)
  1. KEYTRUDA [Suspect]
     Active Substance: PEMBROLIZUMAB
     Indication: Uterine cancer
     Dosage: 200 MILLIGRAM, Q3W
     Route: 041
     Dates: start: 20240821, end: 20240821
  2. KEYTRUDA [Suspect]
     Active Substance: PEMBROLIZUMAB
     Indication: Cancer with a high tumour mutational burden
  3. LENVATINIB MESYLATE [Suspect]
     Active Substance: LENVATINIB MESYLATE
     Indication: Uterine cancer
     Dosage: 20 MILLIGRAM, QD
     Route: 048
     Dates: start: 20240821, end: 20240902
  4. LENVATINIB MESYLATE [Suspect]
     Active Substance: LENVATINIB MESYLATE
     Indication: Cancer with a high tumour mutational burden

REACTIONS (13)
  - Cytokine release syndrome [Recovered/Resolved]
  - Sepsis [Recovering/Resolving]
  - Shock [Recovering/Resolving]
  - Malignant neoplasm progression [Unknown]
  - Biliary dilatation [Recovered/Resolved]
  - Ascites [Recovered/Resolved]
  - Multiple organ dysfunction syndrome [Recovered/Resolved]
  - Gastrointestinal wall thickening [Recovered/Resolved]
  - Pyrexia [Recovered/Resolved]
  - Anaphylactic reaction [Recovering/Resolving]
  - Rash [Recovering/Resolving]
  - Hepatic function abnormal [Recovering/Resolving]
  - Renal impairment [Recovering/Resolving]

NARRATIVE: CASE EVENT DATE: 20240830
